FAERS Safety Report 22391431 (Version 2)
Quarter: 2023Q2

REPORT INFORMATION
  Report Type: Spontaneous
  Country: DE (occurrence: DE)
  Receive Date: 20230601
  Receipt Date: 20230607
  Transmission Date: 20230722
  Serious: Yes (Death)
  Sender: FDA-Public Use
  Company Number: DE-TEVA-2023-DE-2891954

PATIENT
  Age: 33 Year
  Sex: Male

DRUGS (4)
  1. PACLITAXEL [Suspect]
     Active Substance: PACLITAXEL
     Indication: Testicular cancer metastatic
     Dosage: PART OF TIP REGIMEN; 4 X TIP
     Route: 065
  2. CISPLATIN [Suspect]
     Active Substance: CISPLATIN
     Indication: Testicular cancer metastatic
     Dosage: PART OF TIP REGIMEN; 4 X TIP
     Route: 065
  3. IFOSFAMIDE [Suspect]
     Active Substance: IFOSFAMIDE
     Indication: Testicular cancer metastatic
     Dosage: PART OF TIP REGIMEN; 4 X TIP
     Route: 065
  4. PEMBROLIZUMAB [Suspect]
     Active Substance: PEMBROLIZUMAB
     Indication: Testicular cancer metastatic
     Dosage: 200MG EVERY 3 WEEKS
     Route: 065

REACTIONS (1)
  - Drug ineffective [Fatal]
